FAERS Safety Report 14602443 (Version 16)
Quarter: 2022Q1

REPORT INFORMATION
  Report Type: Spontaneous
  Country: US (occurrence: US)
  Receive Date: 20180306
  Receipt Date: 20220215
  Transmission Date: 20220423
  Serious: No
  Sender: FDA-Public Use
  Company Number: US-PFIZER INC-2017222896

PATIENT
  Age: 33 Year
  Sex: Female
  Weight: 61 kg

DRUGS (12)
  1. LYRICA [Suspect]
     Active Substance: PREGABALIN
     Indication: Lumbar radiculopathy
     Dosage: 150 MG, 2X/DAY (2 CAPSULES)
     Route: 048
  2. LYRICA [Suspect]
     Active Substance: PREGABALIN
     Indication: Sciatica
     Dosage: UNK
     Route: 048
     Dates: start: 20180228
  3. LYRICA [Suspect]
     Active Substance: PREGABALIN
     Indication: Nervous system disorder
     Dosage: 75 MG, 4X/DAY (1 CAPSULE BY ORAL ROUTE IN EVERY 6 HOUR)
     Route: 048
  4. LYRICA [Suspect]
     Active Substance: PREGABALIN
     Indication: Nerve injury
     Dosage: 75 MG (TAKE 1 CAPSULE BY ORAL ROUTE EVERY 7 HOURS)
     Route: 048
  5. LYRICA [Suspect]
     Active Substance: PREGABALIN
     Indication: Brain injury
  6. LYRICA [Suspect]
     Active Substance: PREGABALIN
     Indication: Neuralgia
  7. LYRICA [Suspect]
     Active Substance: PREGABALIN
     Indication: Back injury
  8. XANAX [Concomitant]
     Active Substance: ALPRAZOLAM
     Dosage: UNK
  9. METOPROLOL [Concomitant]
     Active Substance: METOPROLOL
     Dosage: UNK
  10. MELATONIN [Concomitant]
     Active Substance: MELATONIN
     Dosage: UNK
  11. ADVIL PM [Concomitant]
     Active Substance: DIPHENHYDRAMINE CITRATE\IBUPROFEN
     Dosage: UNK
  12. NAPROXEN [Concomitant]
     Active Substance: NAPROXEN
     Dosage: UNK

REACTIONS (3)
  - Product prescribing error [Unknown]
  - Pain [Unknown]
  - Weight increased [Unknown]
